FAERS Safety Report 21694516 (Version 1)
Quarter: 2022Q4

REPORT INFORMATION
  Report Type: Spontaneous
  Country: CA (occurrence: CA)
  Receive Date: 20221207
  Receipt Date: 20221207
  Transmission Date: 20230113
  Serious: Yes (Other)
  Sender: FDA-Public Use
  Company Number: CA-ORGANON-O2112CAN000237

PATIENT
  Sex: Female

DRUGS (9)
  1. SINGULAIR [Suspect]
     Active Substance: MONTELUKAST SODIUM
     Indication: Asthma
     Dosage: 10.0 MILLIGRAM, 1 EVERY 1 DAYS
     Route: 048
  2. NASONEX [Suspect]
     Active Substance: MOMETASONE FUROATE
     Indication: Product used for unknown indication
     Dosage: DOSAGE FORM: SPRAY, METERED DOSE
     Route: 065
  3. ALVESCO [Suspect]
     Active Substance: CICLESONIDE
     Indication: Product used for unknown indication
     Dosage: 1.0 DOSAGE FORMS, 1 EVERY 1 DAYS
     Route: 048
  4. SYMBICORT [Suspect]
     Active Substance: BUDESONIDE\FORMOTEROL FUMARATE DIHYDRATE
     Indication: Asthma
     Dosage: 2 EVERY 1 DAYS
     Route: 065
  5. SYMBICORT [Suspect]
     Active Substance: BUDESONIDE\FORMOTEROL FUMARATE DIHYDRATE
     Dosage: 2 DOSAGE FORMS, 1 EVERY 1 DAYS; 200/6
  6. BUPROPION [Suspect]
     Active Substance: BUPROPION
     Indication: Product used for unknown indication
     Dosage: 150.0 MILLIGRAM, 1 EVERY 1 DAYS
     Route: 065
  7. NUCALA [Suspect]
     Active Substance: MEPOLIZUMAB
     Indication: Asthma
     Dosage: 100.0 MILLIGRAM
     Route: 042
  8. SPIRIVA [Suspect]
     Active Substance: TIOTROPIUM BROMIDE MONOHYDRATE
     Indication: Asthma
     Dosage: DOSAGE FORM NOT SPECIFIED
     Route: 065
  9. TIOTROPIUM BROMIDE [Suspect]
     Active Substance: TIOTROPIUM BROMIDE
     Indication: Asthma
     Dosage: UNK
     Route: 065

REACTIONS (7)
  - Asthma exercise induced [Unknown]
  - Cholelithiasis [Unknown]
  - Factor V Leiden mutation [Unknown]
  - Gestational diabetes [Unknown]
  - Hypertension [Unknown]
  - Rhinitis [Unknown]
  - Sleep apnoea syndrome [Unknown]
